FAERS Safety Report 8539726-7 (Version None)
Quarter: 2012Q3

REPORT INFORMATION
  Report Type: 
  Country: None (occurrence: None)
  Receive Date: 20120726
  Receipt Date: 20120306
  Transmission Date: 20120928
  Serious: No
  Sender: FDA-Public Use
  Company Number: AS-ASTRAZENECA-2010SE19994

PATIENT
  Age: 47 Year
  Sex: Female

DRUGS (10)
  1. SEROQUEL [Suspect]
     Indication: BIPOLAR I DISORDER
     Route: 048
  2. CONCERTA [Concomitant]
  3. SEROQUEL [Interacting]
     Route: 048
  4. KLONOPIN [Concomitant]
  5. SEROQUEL [Interacting]
     Indication: HALLUCINATION
     Route: 048
  6. SEROQUEL [Interacting]
     Route: 048
  7. PROZAC [Concomitant]
  8. MIGRAINE MEDICATION [Interacting]
  9. SEROQUEL [Interacting]
     Indication: PSYCHOTIC DISORDER
     Route: 048
  10. SEROQUEL [Interacting]
     Route: 048

REACTIONS (17)
  - VOMITING [None]
  - MALAISE [None]
  - CYSTITIS [None]
  - MUSCLE SPASMS [None]
  - DEMENTIA [None]
  - HALLUCINATIONS, MIXED [None]
  - PERSECUTORY DELUSION [None]
  - DELUSIONAL DISORDER, UNSPECIFIED TYPE [None]
  - DRUG INTERACTION [None]
  - GASTRIC DISORDER [None]
  - WEIGHT DECREASED [None]
  - URETHRAL STENOSIS [None]
  - FEELING ABNORMAL [None]
  - MIGRAINE [None]
  - URINARY TRACT INFECTION [None]
  - ENTERITIS INFECTIOUS [None]
  - UPPER RESPIRATORY TRACT INFECTION [None]
